FAERS Safety Report 8274423-7 (Version None)
Quarter: 2012Q1

REPORT INFORMATION
  Report Type: 
  Country: None (occurrence: None)
  Receive Date: 20120309
  Receipt Date: 20120110
  Transmission Date: 20120608
  Serious: Yes (Other)
  Sender: FDA-Public Use
  Company Number: PHEH2011US012735

PATIENT
  Age: 81 Year
  Sex: Female

DRUGS (17)
  1. PEPCID [Concomitant]
  2. ACETAMINOPHEN [Concomitant]
  3. PHILLIPS (POLYCARBOPHIL CALCIUM) [Concomitant]
  4. ASPIRIN [Concomitant]
  5. ASCORBIC ACID [Concomitant]
  6. CITRACAL + D (CALCIUM CITRATE, ERGOCALCIFEROL) [Concomitant]
  7. VITAMIN D [Concomitant]
  8. AMLODIPINE [Suspect]
     Dosage: 5 MG, QD
  9. AMIODARONE HCL [Concomitant]
  10. MAGNESIUM (MAGNESIUM) [Concomitant]
  11. KLOR-CON [Concomitant]
  12. LASIX [Concomitant]
  13. XANAX [Concomitant]
  14. TEKTURNA HCT [Suspect]
     Dosage: 1 DF,(300/12.5 MG) QD
  15. WARFARIN SODIUM [Suspect]
     Dosage: 1 TO 2 MG ONCE A DAY
  16. ASACOL [Concomitant]
  17. METOPROLOL TARTRATE [Concomitant]

REACTIONS (4)
  - OEDEMA PERIPHERAL [None]
  - JOINT SWELLING [None]
  - BLOOD DISORDER [None]
  - SWELLING [None]
